FAERS Safety Report 26183820 (Version 1)
Quarter: 2025Q4

REPORT INFORMATION
  Report Type: Spontaneous
  Country: US (occurrence: US)
  Receive Date: 20251221
  Receipt Date: 20251221
  Transmission Date: 20260117
  Serious: No
  Sender: ROCHE
  Company Number: US-ROCHE-10000463478

PATIENT
  Sex: Male

DRUGS (2)
  1. OCREVUS [Suspect]
     Active Substance: OCRELIZUMAB
     Indication: Product used for unknown indication
  2. BRIUMVI [Concomitant]
     Active Substance: UBLITUXIMAB-XIIY

REACTIONS (2)
  - Drug ineffective [Unknown]
  - No adverse event [Unknown]
